FAERS Safety Report 9625149 (Version 1)
Quarter: 2013Q4

REPORT INFORMATION
  Report Type: Spontaneous
  Country: US (occurrence: US)
  Receive Date: 20131016
  Receipt Date: 20131016
  Transmission Date: 20140711
  Serious: No
  Sender: FDA-Public Use
  Company Number: US-BAYER-2013-122787

PATIENT
  Sex: Female

DRUGS (1)
  1. BETASERON [Suspect]
     Dosage: 0.3 MG, UNK
     Route: 058
     Dates: start: 201309

REACTIONS (3)
  - Tremor [None]
  - Gait disturbance [None]
  - Incorrect dose administered [None]
